FAERS Safety Report 9161953 (Version 1)
Quarter: 2013Q1

REPORT INFORMATION
  Report Type: Spontaneous
  Country: US (occurrence: None)
  Receive Date: 20130225
  Receipt Date: 20130225
  Transmission Date: 20140127
  Serious: Yes (Hospitalization)
  Sender: FDA-Public Use
  Company Number: 145514

PATIENT
  Age: 67 Year
  Sex: 0
  Weight: 50 kg

DRUGS (2)
  1. LEUCOVORIN CALCIUM FOR INJ. 50MG - BEDFORD LABS, INC. [Suspect]
     Indication: COLORECTAL CANCER METASTATIC
     Route: 042
     Dates: start: 20121009, end: 20121218
  2. REFER TO CIOMS JP201302001225(12FEB2013) FOR DETAILS [Concomitant]

REACTIONS (1)
  - Rectal obstruction [None]
